FAERS Safety Report 6602699-8 (Version None)
Quarter: 2010Q1

REPORT INFORMATION
  Report Type: 
  Country: None (occurrence: None)
  Receive Date: 20100218
  Receipt Date: 20100203
  Transmission Date: 20100710
  Serious: Yes (Other)
  Sender: FDA-Public Use
  Company Number: 1000011836

PATIENT
  Sex: Female

DRUGS (2)
  1. CITALOPRAM HYDROBROMIDE [Suspect]
     Indication: OBSESSIVE-COMPULSIVE DISORDER
     Dosage: 10 MG 910 MG, 1 IN 1 D)
  2. CLOZARIL [Suspect]
     Indication: SCHIZOPHRENIA
     Dosage: 300 MG (300 MG, 1 IN 1 D)
     Dates: start: 20030401

REACTIONS (3)
  - DRUG INTERACTION [None]
  - DRUG LEVEL INCREASED [None]
  - OBSESSIVE-COMPULSIVE DISORDER [None]
